FAERS Safety Report 9991637 (Version 1)
Quarter: 2014Q1

REPORT INFORMATION
  Report Type: Spontaneous
  Country: US (occurrence: US)
  Receive Date: 20140310
  Receipt Date: 20140310
  Transmission Date: 20141002
  Serious: No
  Sender: FDA-Public Use
  Company Number: US-ASTRAZENECA-2014SE14385

PATIENT
  Age: 50 Year
  Sex: Male

DRUGS (6)
  1. BRILINTA [Suspect]
     Indication: ISCHAEMIC HEART DISEASE PROPHYLAXIS
     Route: 048
     Dates: start: 2014
  2. BRILINTA [Suspect]
     Indication: STENT PLACEMENT
     Route: 048
     Dates: start: 2014
  3. COREG [Concomitant]
     Dates: start: 2014
  4. ASPIRIN [Concomitant]
     Dosage: 81 MG
     Dates: start: 2014
  5. LIPITOR [Concomitant]
     Dates: start: 2014
  6. LAXATIVE [Concomitant]
     Indication: GASTROINTESTINAL MOTILITY DISORDER

REACTIONS (6)
  - Throat irritation [Not Recovered/Not Resolved]
  - Dysphonia [Not Recovered/Not Resolved]
  - Nasopharyngitis [Not Recovered/Not Resolved]
  - Abdominal distension [Not Recovered/Not Resolved]
  - Feeling abnormal [Not Recovered/Not Resolved]
  - Bowel movement irregularity [Not Recovered/Not Resolved]
